FAERS Safety Report 9912140 (Version 5)
Quarter: 2015Q2

REPORT INFORMATION
  Report Type: Report from Study
  Country: DE (occurrence: DE)
  Receive Date: 20140220
  Receipt Date: 20150619
  Transmission Date: 20150821
  Serious: Yes (Hospitalization)
  Sender: FDA-Public Use
  Company Number: DE-BRISTOL-MYERS SQUIBB COMPANY-20117073

PATIENT
  Age: 67 Year
  Sex: Female

DRUGS (3)
  1. PLACEBO [Suspect]
     Active Substance: UNSPECIFIED INGREDIENT
     Indication: SMALL CELL LUNG CANCER
     Dosage: 10 MG/KG, QCYCLE
     Route: 042
     Dates: start: 20130912, end: 20131129
  2. CARBOPLATIN. [Suspect]
     Active Substance: CARBOPLATIN
     Indication: SMALL CELL LUNG CANCER
     Dosage: 1 DF, QCYCLE
     Route: 042
     Dates: start: 20130801, end: 20131017
  3. ETOPOSIDE. [Suspect]
     Active Substance: ETOPOSIDE
     Indication: SMALL CELL LUNG CANCER
     Dosage: 100 MG, QCYCLE
     Route: 042
     Dates: start: 20130801, end: 20131017

REACTIONS (2)
  - Interstitial lung disease [Recovered/Resolved]
  - Atypical pneumonia [Recovered/Resolved with Sequelae]

NARRATIVE: CASE EVENT DATE: 20140123
